FAERS Safety Report 11178285 (Version 1)
Quarter: 2015Q2

REPORT INFORMATION
  Report Type: Spontaneous
  Country: FR (occurrence: FR)
  Receive Date: 20150610
  Receipt Date: 20150610
  Transmission Date: 20150821
  Serious: Yes (Other)
  Sender: FDA-Public Use
  Company Number: FR-GLAXOSMITHKLINE-FR2015GSK074676

PATIENT
  Age: 30 Year
  Sex: Female

DRUGS (1)
  1. LAMICTAL [Suspect]
     Active Substance: LAMOTRIGINE
     Indication: EPILEPSY
     Dosage: UNK
     Route: 048

REACTIONS (3)
  - DNA antibody [Not Recovered/Not Resolved]
  - Systemic lupus erythematosus [Not Recovered/Not Resolved]
  - Antinuclear antibody increased [Not Recovered/Not Resolved]

NARRATIVE: CASE EVENT DATE: 2015
